FAERS Safety Report 8929984 (Version 1)
Quarter: 2012Q4

REPORT INFORMATION
  Report Type: 
  Country: IT (occurrence: IT)
  Receive Date: 20121128
  Receipt Date: 20121128
  Transmission Date: 20130627
  Serious: Yes (Hospitalization)
  Sender: FDA-Public Use
  Company Number: PHHY2012IT108189

PATIENT
  Sex: Female

DRUGS (4)
  1. DIAZEPAM [Suspect]
     Dosage: 14 gtt, UNK
     Dates: start: 20121101, end: 20121101
  2. FLUOXETINE HYDROCHLORIDE [Suspect]
     Dosage: 30 mg, UNK
     Dates: start: 20121101, end: 20121101
  3. XANAX [Suspect]
     Dosage: 350 mg, UNK
     Route: 048
     Dates: start: 20121101, end: 20121101
  4. DEPAKIN [Suspect]
     Dosage: 1 DF, UNK
     Route: 048
     Dates: start: 20121101, end: 20121101

REACTIONS (3)
  - Sopor [Recovering/Resolving]
  - Drug abuse [Recovering/Resolving]
  - Intentional overdose [Unknown]
